FAERS Safety Report 8407042-X (Version None)
Quarter: 2012Q2

REPORT INFORMATION
  Report Type: 
  Country: None (occurrence: None)
  Receive Date: 20120604
  Receipt Date: 20120528
  Transmission Date: 20120825
  Serious: Yes (Other)
  Sender: FDA-Public Use
  Company Number: PHHY2012JP044702

PATIENT
  Sex: Male
  Weight: 38 kg

DRUGS (7)
  1. CASODEX [Suspect]
     Indication: PROSTATE CANCER
     Dosage: 80 MG, QD
     Route: 048
     Dates: start: 20120327, end: 20120514
  2. ONBREZ [Suspect]
     Indication: CHRONIC OBSTRUCTIVE PULMONARY DISEASE
     Dosage: 150 UG, QD (ONCE DAILY)
     Dates: start: 20120409, end: 20120418
  3. CLARITHROMYCIN [Concomitant]
  4. FLIVASTATIN SODIUM [Suspect]
     Indication: BENIGN PROSTATIC HYPERPLASIA
     Dosage: 75 MG, QD
     Route: 048
     Dates: start: 20120327, end: 20120514
  5. VESICARE [Suspect]
     Indication: BENIGN PROSTATIC HYPERPLASIA
     Dosage: 5 MG, QD
     Route: 048
     Dates: start: 20120327, end: 20120514
  6. BETHANECHOL CHLORIDE [Suspect]
     Indication: BENIGN PROSTATIC HYPERPLASIA
     Dosage: 15 MG, QD
     Route: 048
     Dates: start: 20120327, end: 20120514
  7. HOKUNALIN [Concomitant]
     Route: 062

REACTIONS (1)
  - URINARY RETENTION [None]
